FAERS Safety Report 16743901 (Version 4)
Quarter: 2019Q3

REPORT INFORMATION
  Report Type: Spontaneous
  Country: JP (occurrence: JP)
  Receive Date: 20190827
  Receipt Date: 20190919
  Transmission Date: 20191005
  Serious: Yes (Death, Hospitalization, Other)
  Sender: FDA-Public Use
  Company Number: JP-AMGEN-JPNSP2019135729

PATIENT
  Age: 89 Year
  Sex: Female

DRUGS (7)
  1. BFLUID [Concomitant]
     Active Substance: AMINO ACIDS\DEXTROSE\ELECTROLYTES NOS\VITAMINS
     Indication: EATING DISORDER
     Dosage: UNK
     Dates: start: 20190326, end: 20190611
  2. SARPOGRELATE HYDROCHLORIDE [Concomitant]
     Active Substance: SARPOGRELATE HYDROCHLORIDE
     Indication: PERIPHERAL VASCULAR DISORDER
     Dosage: 100 MILLIGRAM, BID
     Dates: start: 20190319, end: 20190612
  3. LANSOPRAZOLE. [Concomitant]
     Active Substance: LANSOPRAZOLE
     Indication: DUODENAL ULCER
     Dosage: 15 MILLIGRAM, QD
     Dates: start: 20190304, end: 20190612
  4. EVENITY [Suspect]
     Active Substance: ROMOSOZUMAB-AQQG
     Indication: OSTEOPOROSIS
     Dosage: 210 MILLIGRAM
     Route: 058
     Dates: start: 20190415, end: 20190612
  5. SARPOGRELATE HYDROCHLORIDE [Concomitant]
     Active Substance: SARPOGRELATE HYDROCHLORIDE
     Indication: PAIN IN EXTREMITY
  6. RIVASTACH [Concomitant]
     Active Substance: RIVASTIGMINE
     Indication: MIXED DEMENTIA
     Dosage: 18 MILLIGRAM, QD
     Dates: start: 20190401, end: 20190712
  7. PHYSIO 140 [Concomitant]
     Active Substance: CALCIUM GLUCONATE\DEXTROSE\MAGNESIUM CHLORIDE\POTASSIUM CHLORIDE\SODIUM ACETATE\SODIUM CHLORIDE\TRISODIUM CITRATE DIHYDRATE
     Indication: EATING DISORDER
     Dosage: UNK
     Dates: start: 20190326, end: 20190611

REACTIONS (2)
  - Cardiac failure [Fatal]
  - Depressed level of consciousness [Unknown]

NARRATIVE: CASE EVENT DATE: 20190616
